FAERS Safety Report 8579207-8 (Version None)
Quarter: 2012Q3

REPORT INFORMATION
  Report Type: 
  Country: None (occurrence: None)
  Receive Date: 20120726
  Receipt Date: 20120712
  Transmission Date: 20120928
  Serious: Yes (Hospitalization)
  Sender: FDA-Public Use
  Company Number: DSJ-2012-12709

PATIENT
  Age: 62 Year
  Sex: 0

DRUGS (4)
  1. STILLEN TAB (TABLET) [Concomitant]
  2. HYALEIN MINI EYE DROPS 0.1% (HYALURONIC ACID) (EYE DROPS) (HYALURONIC [Concomitant]
  3. OLMESARTAN MEDOXOMIL [Suspect]
     Indication: ESSENTIAL HYPERTENSION
     Dosage: 20 MG (20 MG,1 IN 1 D),PER ORAL
     Route: 048
     Dates: start: 20111216, end: 20120115
  4. DURATEARS OPHTHALMIC OINTMENT)(POLYVIDONE) (EYE OINTMENT) (POLYVIDONE) [Concomitant]

REACTIONS (1)
  - DYSPHAGIA [None]
